FAERS Safety Report 5924207-7 (Version None)
Quarter: 2008Q4

REPORT INFORMATION
  Report Type: 
  Country: None (occurrence: None)
  Receive Date: 20081015
  Receipt Date: 20081008
  Transmission Date: 20090506
  Serious: Yes (Other)
  Sender: FDA-Public Use
  Company Number: 2007SP006244

PATIENT
  Age: 49 Year
  Sex: Male
  Weight: 61 kg

DRUGS (17)
  1. PEG-INTRON [Suspect]
     Indication: HEPATITIS C
     Dosage: SEE IMAGE
     Route: 058
     Dates: start: 20050801, end: 20050808
  2. PEG-INTRON [Suspect]
     Indication: HEPATITIS C
     Dosage: SEE IMAGE
     Route: 058
     Dates: start: 20050915, end: 20060427
  3. PEG-INTRON [Suspect]
     Indication: HEPATITIS C
     Dosage: SEE IMAGE
     Route: 058
     Dates: start: 20060502, end: 20060511
  4. PEG-INTRON [Suspect]
     Indication: HEPATITIS C
     Dosage: SEE IMAGE
     Route: 058
     Dates: start: 20060518, end: 20060727
  5. REBETOL [Suspect]
     Indication: HEPATITIS C
     Dosage: SEE IMAGE
     Route: 048
     Dates: start: 20050808, end: 20050811
  6. REBETOL [Suspect]
     Indication: HEPATITIS C
     Dosage: SEE IMAGE
     Route: 048
     Dates: start: 20050801, end: 20050827
  7. REBETOL [Suspect]
     Indication: HEPATITIS C
     Dosage: SEE IMAGE
     Route: 048
     Dates: start: 20050915, end: 20060802
  8. RETROVIR [Concomitant]
  9. EPIVIR [Concomitant]
  10. CRIXIVAN [Concomitant]
  11. KALETRA [Concomitant]
  12. VIREAD [Concomitant]
  13. RETROVIR [Concomitant]
  14. NU-LOTAN [Concomitant]
  15. FLUITRAN [Concomitant]
  16. VIDEX [Concomitant]
  17. ESPO [Concomitant]

REACTIONS (6)
  - CD4 LYMPHOCYTES DECREASED [None]
  - CD8 LYMPHOCYTES DECREASED [None]
  - HAEMOGLOBIN INCREASED [None]
  - PYREXIA [None]
  - RED BLOOD CELL COUNT INCREASED [None]
  - WHITE BLOOD CELL COUNT INCREASED [None]
